FAERS Safety Report 11094916 (Version 4)
Quarter: 2015Q3

REPORT INFORMATION
  Report Type: Other
  Country: ES (occurrence: ES)
  Receive Date: 20150506
  Receipt Date: 20150903
  Transmission Date: 20151125
  Serious: Yes (Hospitalization)
  Sender: FDA-Public Use
  Company Number: ES-NAPPMUNDI-DEU-2015-0016699

PATIENT
  Age: 42 Year
  Sex: Male

DRUGS (10)
  1. OXYCONTIN [Suspect]
     Active Substance: OXYCODONE HYDROCHLORIDE
     Indication: NEURALGIA
     Dosage: 10 MG, SEE TEXT
     Route: 048
     Dates: start: 20110804, end: 20110807
  2. ADOLONTA [Suspect]
     Active Substance: TRAMADOL HYDROCHLORIDE
     Indication: NEURALGIA
     Dosage: 100 MG, DAILY
     Route: 048
     Dates: start: 20110808, end: 20140818
  3. ADOLONTA [Suspect]
     Active Substance: TRAMADOL HYDROCHLORIDE
     Indication: NEURALGIA
     Dosage: 300 MG, DAILY
     Route: 042
     Dates: start: 2011
  4. PREGABALIN. [Concomitant]
     Active Substance: PREGABALIN
     Indication: NEURALGIA
     Dosage: 300 MG, DAILY
     Route: 048
     Dates: start: 20110804
  5. PARACETAMOL [Concomitant]
     Active Substance: ACETAMINOPHEN
     Indication: NEURALGIA
     Dosage: 3 G, DAILY
     Route: 048
     Dates: start: 20110804
  6. ALPRAZOLAM. [Concomitant]
     Active Substance: ALPRAZOLAM
     Indication: PSYCHOMOTOR HYPERACTIVITY
     Dosage: 4 MG, Q8H
  7. OXYNORM 5 MG CAPSULAS [Suspect]
     Active Substance: OXYCODONE HYDROCHLORIDE
     Indication: NEURALGIA
     Dosage: 5 MG, PRN
     Route: 048
     Dates: start: 20110804, end: 20110807
  8. AMITRIPTYLINE [Concomitant]
     Active Substance: AMITRIPTYLINE
     Indication: NEURALGIA
     Dosage: 25 MG, DAILY
     Route: 048
     Dates: start: 20110804
  9. MST CONTINUS, COMPRIMIDOS [Suspect]
     Active Substance: MORPHINE SULFATE
     Indication: NEURALGIA
     Dosage: 10 MG, BID
     Route: 048
     Dates: start: 20110808
  10. MST CONTINUS, COMPRIMIDOS [Suspect]
     Active Substance: MORPHINE SULFATE
     Dosage: UNK
     Route: 048

REACTIONS (2)
  - Confusional state [Unknown]
  - Ischaemic cerebral infarction [Unknown]

NARRATIVE: CASE EVENT DATE: 201408
